FAERS Safety Report 9939600 (Version 2)
Quarter: 2014Q1

REPORT INFORMATION
  Report Type: Spontaneous
  Country: US (occurrence: US)
  Receive Date: 20140303
  Receipt Date: 20140303
  Transmission Date: 20141002
  Serious: Yes (Death)
  Sender: FDA-Public Use
  Company Number: US-GE HEALTHCARE MEDICAL DIAGNOSTICS-OSCN-PR-0812S-0653

PATIENT
  Age: 44 Year
  Sex: Female

DRUGS (8)
  1. OMNISCAN [Suspect]
     Indication: RENAL FAILURE CHRONIC
     Route: 042
     Dates: start: 20060817, end: 20060817
  2. OMNISCAN [Suspect]
     Indication: HERPES ZOSTER
  3. OMNISCAN [Suspect]
     Indication: BACK PAIN
  4. OMNISCAN [Suspect]
     Indication: RENAL FAILURE CHRONIC
  5. OMNISCAN [Suspect]
     Indication: HERPES SIMPLEX ENCEPHALITIS
  6. EPOGEN [Concomitant]
     Indication: ANAEMIA
  7. LIDOCAINE [Concomitant]
     Indication: PAIN
  8. FENTANYL [Concomitant]
     Indication: PAIN

REACTIONS (1)
  - Nephrogenic systemic fibrosis [Fatal]
